FAERS Safety Report 25326465 (Version 3)
Quarter: 2025Q4

REPORT INFORMATION
  Report Type: Report from Study
  Country: US (occurrence: US)
  Receive Date: 20250516
  Receipt Date: 20251008
  Transmission Date: 20260117
  Serious: Yes (Other)
  Sender: MALLINCKRODT
  Company Number: US-MALLINCKRODT-MNK202502773

PATIENT
  Sex: Female
  Weight: 220 kg

DRUGS (4)
  1. CORTICOTROPIN [Suspect]
     Active Substance: CORTICOTROPIN
     Indication: Pulmonary sarcoidosis
     Dosage: 80 UNITS
     Dates: start: 201512
  2. BENADRYL [Concomitant]
     Active Substance: DIPHENHYDRAMINE HYDROCHLORIDE
     Dosage: UNKNOWN
  3. OXYGEN [Concomitant]
     Active Substance: OXYGEN
     Dosage: 5 LITERS, 24/7
  4. TYLENOL [Concomitant]
     Active Substance: ACETAMINOPHEN
     Dosage: UNKNOWN

REACTIONS (11)
  - Sarcoidosis [Not Recovered/Not Resolved]
  - Cardiac disorder [Unknown]
  - Renal impairment [Unknown]
  - Blood glucose increased [Recovering/Resolving]
  - Drug resistance [Unknown]
  - Adverse drug reaction [Unknown]
  - Feeling abnormal [Unknown]
  - Sensitivity to weather change [Unknown]
  - Weight increased [Unknown]
  - Asthenia [Unknown]
  - Therapeutic product effect decreased [Unknown]
